FAERS Safety Report 7833629-9 (Version None)
Quarter: 2011Q4

REPORT INFORMATION
  Report Type: 
  Country: None (occurrence: None)
  Receive Date: 20111020
  Receipt Date: 20111005
  Transmission Date: 20120403
  Serious: Yes (Hospitalization, Other)
  Sender: FDA-Public Use
  Company Number: NSR_00288_2011

PATIENT
  Age: 50 Year
  Sex: Male
  Weight: 143 kg

DRUGS (7)
  1. DICLOFENAC SODIUM [Concomitant]
  2. SEVOFLURANE-VECURONIUM-FENTANYL [Concomitant]
  3. WHOLE BOOD [Concomitant]
  4. TRAMADOL HCL [Suspect]
     Indication: PROCEDURAL PAIN
     Dosage: (400 MG INTRAVENOUS (NOT OTHERWISE SPECIFIED)
     Route: 042
  5. PROPOFOL [Concomitant]
  6. FENTANYL-100 [Concomitant]
  7. SUCCYNYLCHOLINE [Concomitant]

REACTIONS (6)
  - OXYGEN SATURATION DECREASED [None]
  - RESPIRATORY DEPRESSION [None]
  - OBSTRUCTIVE AIRWAYS DISORDER [None]
  - SOMNOLENCE [None]
  - UNRESPONSIVE TO STIMULI [None]
  - RESPIRATORY FAILURE [None]
